FAERS Safety Report 4268659-X (Version None)
Quarter: 2004Q1

REPORT INFORMATION
  Report Type: 
  Country: None (occurrence: None)
  Receive Date: 20040108
  Receipt Date: 20031229
  Transmission Date: 20041129
  Serious: Yes (Disabling, Other)
  Sender: FDA-Public Use
  Company Number: 2003125027

PATIENT
  Age: 48 Year
  Sex: Male
  Weight: 98 kg

DRUGS (1)
  1. VIBRAMYCIN [Suspect]
     Indication: CHLAMYDIAL INFECTION
     Dosage: 200 MG (DAILY), ORAL
     Route: 048
     Dates: start: 20031203, end: 20031203

REACTIONS (1)
  - TINNITUS [None]
